FAERS Safety Report 7236011-0 (Version None)
Quarter: 2011Q1

REPORT INFORMATION
  Report Type: 
  Country: None (occurrence: None)
  Receive Date: 20110120
  Receipt Date: 20110114
  Transmission Date: 20110831
  Serious: Yes (Other)
  Sender: FDA-Public Use
  Company Number: IT-BRISTOL-MYERS SQUIBB COMPANY-15280035

PATIENT
  Age: 71 Year
  Sex: Male

DRUGS (7)
  1. TICLID [Concomitant]
     Dosage: 1 DF: 1 TAB*2 250 MG MORE THAN 18 MONTHS
  2. URBASON [Concomitant]
     Dosage: 1 DF: 1 TAB 4 MG MORE THAN 18 MONTHS
  3. ORENCIA [Suspect]
     Dates: start: 20080901, end: 20100501
  4. MIRAPEXIN [Concomitant]
     Dosage: 1 DF: 1 TAB*3 0.35 MG MORE THAN 18 MONTHS
  5. TENORMIN [Concomitant]
     Dosage: 1 DF: 1 TAB 100 MG MORE THAN 18 MONTHS
  6. SIVASTIN [Concomitant]
     Dosage: 1 DF: 1 TAB 40 MG MORE THAN 18 MONTHS
  7. PLAUNAC [Concomitant]
     Dosage: 1 DF: 1 TAB 20 MG MORE THAN 18 MONTHS

REACTIONS (1)
  - ACUTE MYOCARDIAL INFARCTION [None]
